FAERS Safety Report 11884742 (Version 2)
Quarter: 2016Q1

REPORT INFORMATION
  Report Type: Spontaneous
  Country: US (occurrence: US)
  Receive Date: 20160104
  Receipt Date: 20160115
  Transmission Date: 20160526
  Serious: Yes (Hospitalization)
  Sender: FDA-Public Use
  Company Number: US-BEH-2015057306

PATIENT
  Sex: Female
  Weight: 65 kg

DRUGS (34)
  1. PYRIDIUM [Concomitant]
     Active Substance: PHENAZOPYRIDINE
  2. XANAX [Concomitant]
     Active Substance: ALPRAZOLAM
  3. CEFUROXIME AXETIL. [Concomitant]
     Active Substance: CEFUROXIME AXETIL
  4. EPIPEN [Concomitant]
     Active Substance: EPINEPHRINE
  5. PERCOCET [Concomitant]
     Active Substance: ACETAMINOPHEN\OXYCODONE HYDROCHLORIDE
  6. GABAPENTIN. [Concomitant]
     Active Substance: GABAPENTIN
  7. VITAMIN D3 [Concomitant]
     Active Substance: CHOLECALCIFEROL
  8. DIPHENHYDRAMINE. [Concomitant]
     Active Substance: DIPHENHYDRAMINE
  9. PREDNISONE. [Concomitant]
     Active Substance: PREDNISONE
  10. CVS PROBIOTIC [Concomitant]
  11. LIDOCAINE/PRILOCAINE [Concomitant]
  12. VAGIFEM [Concomitant]
     Active Substance: ESTRADIOL
  13. AMBIEN [Concomitant]
     Active Substance: ZOLPIDEM TARTRATE
  14. GINGER. [Concomitant]
     Active Substance: GINGER
  15. COLCRYS [Concomitant]
     Active Substance: COLCHICINE
  16. OXYCODONE HYDROCHLORIDE. [Concomitant]
     Active Substance: OXYCODONE HYDROCHLORIDE
  17. DIGESTIVE ENZYME [Concomitant]
     Active Substance: UNSPECIFIED INGREDIENT
  18. FLEXERIL [Concomitant]
     Active Substance: CYCLOBENZAPRINE HYDROCHLORIDE
  19. INFED [Concomitant]
     Active Substance: IRON DEXTRAN
  20. FORTEO [Concomitant]
     Active Substance: TERIPARATIDE
  21. PROMETHAZINE [Concomitant]
     Active Substance: PROMETHAZINE\PROMETHAZINE HYDROCHLORIDE
  22. DURAGESIC [Concomitant]
     Active Substance: FENTANYL
  23. CVS VITAMIN C [Concomitant]
  24. VITAMIN B6 [Concomitant]
     Active Substance: PYRIDOXINE HYDROCHLORIDE
  25. HIZENTRA [Suspect]
     Active Substance: HUMAN IMMUNOGLOBULIN G
     Indication: IMMUNODEFICIENCY COMMON VARIABLE
     Dosage: 4 GM 20 ML VIALS
     Route: 058
     Dates: start: 20110208
  26. HYDROCORTISONE. [Concomitant]
     Active Substance: HYDROCORTISONE
  27. PEPCID [Concomitant]
     Active Substance: FAMOTIDINE
  28. HIZENTRA [Suspect]
     Active Substance: HUMAN IMMUNOGLOBULIN G
     Indication: COMBINED IMMUNODEFICIENCY
  29. SYNTHROID [Concomitant]
     Active Substance: LEVOTHYROXINE SODIUM
  30. MACROBID [Concomitant]
     Active Substance: NITROFURANTOIN\NITROFURANTOIN MONOHYDRATE
  31. DILTIAZEM [Concomitant]
     Active Substance: DILTIAZEM
  32. SYNTHROID [Concomitant]
     Active Substance: LEVOTHYROXINE SODIUM
  33. VALTREX [Concomitant]
     Active Substance: VALACYCLOVIR HYDROCHLORIDE
  34. ACETAMINOPHEN. [Concomitant]
     Active Substance: ACETAMINOPHEN

REACTIONS (3)
  - Staphylococcal infection [Not Recovered/Not Resolved]
  - Osteomyelitis [Unknown]
  - Drug dose omission [Unknown]
